FAERS Safety Report 15196407 (Version 1)
Quarter: 2018Q3

REPORT INFORMATION
  Report Type: Spontaneous
  Country: US (occurrence: US)
  Receive Date: 20180626
  Receipt Date: 20180626
  Transmission Date: 20181010
  Serious: Yes (Hospitalization, Other)
  Sender: FDA-Public Use
  Company Number: None

PATIENT
  Age: 68 Year
  Sex: Female

DRUGS (10)
  1. ASPIRIN 325 MG [Concomitant]
     Active Substance: ASPIRIN
  2. FORTEO [Suspect]
     Active Substance: TERIPARATIDE
     Indication: OSTEOPOROSIS
     Route: 058
     Dates: start: 20170915
  3. OXYCODONE AND ACETAMINOPHEN [Concomitant]
     Active Substance: ACETAMINOPHEN\OXYCODONE HYDROCHLORIDE
  4. DOK CAP 100MG [Concomitant]
  5. SPIRONOLACTONE 25 MG [Concomitant]
     Active Substance: SPIRONOLACTONE
  6. ALLOPURINOL 100 MG [Concomitant]
     Active Substance: ALLOPURINOL
  7. SMZ/TMP DS 800/160MG [Concomitant]
  8. CIPROFLOXACIN. [Concomitant]
     Active Substance: CIPROFLOXACIN
  9. METOPROLOL SUCCINATE 200  MG [Concomitant]
  10. ENTRESTO 49?51MG [Concomitant]

REACTIONS (2)
  - Surgery [None]
  - Drug dose omission [None]

NARRATIVE: CASE EVENT DATE: 20180625
